FAERS Safety Report 25090298 (Version 2)
Quarter: 2025Q2

REPORT INFORMATION
  Report Type: Spontaneous
  Country: US (occurrence: US)
  Receive Date: 20250318
  Receipt Date: 20250423
  Transmission Date: 20250716
  Serious: No
  Sender: JOHNSON AND JOHNSON
  Company Number: US-JNJFOC-20250303856

PATIENT
  Sex: Female

DRUGS (1)
  1. CARVYKTI [Suspect]
     Active Substance: CILTACABTAGENE AUTOLEUCEL
     Indication: Product used for unknown indication
     Route: 065

REACTIONS (5)
  - Neutrophil count decreased [Unknown]
  - White blood cell count decreased [Unknown]
  - Sinusitis [Unknown]
  - Bronchitis [Unknown]
  - Illness [Unknown]
